APPROVED DRUG PRODUCT: AMCINONIDE
Active Ingredient: AMCINONIDE
Strength: 0.1%
Dosage Form/Route: OINTMENT;TOPICAL
Application: A076096 | Product #001
Applicant: GENUS LIFESCIENCES INC
Approved: Nov 19, 2002 | RLD: No | RS: Yes | Type: RX